FAERS Safety Report 8824778 (Version 1)
Quarter: 2012Q4

REPORT INFORMATION
  Report Type: 
  Country: US (occurrence: US)
  Receive Date: 20121004
  Receipt Date: 20121004
  Transmission Date: 20130627
  Serious: Yes (Other)
  Sender: FDA-Public Use
  Company Number: US-BAYER-2012-101553

PATIENT

DRUGS (2)
  1. ALKA-SELTZER ORIGINAL [Suspect]
     Indication: DYSPEPSIA
  2. ZANTAC [Concomitant]
     Indication: DYSPEPSIA

REACTIONS (1)
  - Drug dependence [None]
